FAERS Safety Report 6608286-X (Version None)
Quarter: 2010Q1

REPORT INFORMATION
  Report Type: 
  Country: None (occurrence: None)
  Receive Date: 20100301
  Receipt Date: 20100219
  Transmission Date: 20100710
  Serious: Yes (Hospitalization)
  Sender: FDA-Public Use
  Company Number: ES-JNJFOC-20100208976

PATIENT
  Sex: Male

DRUGS (10)
  1. TAVANIC [Suspect]
     Indication: DRUG USE FOR UNKNOWN INDICATION
     Route: 048
  2. ZYVOXID [Suspect]
     Indication: DRUG USE FOR UNKNOWN INDICATION
     Route: 048
  3. TOBRAMYCIN [Concomitant]
     Route: 065
  4. GENTAMICIN [Concomitant]
     Route: 065
  5. ACETYLSALICYLIC ACID [Concomitant]
     Route: 065
  6. HEMOVAS [Concomitant]
     Route: 065
  7. HIBOR [Concomitant]
     Route: 065
  8. NEURONTIN [Concomitant]
     Route: 065
  9. NOLOTIL [Concomitant]
     Route: 065
  10. ZOCOR [Concomitant]
     Route: 065

REACTIONS (2)
  - TOXIC EPIDERMAL NECROLYSIS [None]
  - TOXIC SKIN ERUPTION [None]
